FAERS Safety Report 9577530 (Version 1)
Quarter: 2013Q4

REPORT INFORMATION
  Report Type: Spontaneous
  Country: US (occurrence: US)
  Receive Date: 20131001
  Receipt Date: 20131001
  Transmission Date: 20140711
  Serious: No
  Sender: FDA-Public Use
  Company Number: US-AMGEN-USASP2013008339

PATIENT
  Age: 57 Year
  Sex: Male
  Weight: 77.1 kg

DRUGS (7)
  1. ENBREL [Suspect]
     Indication: PSORIASIS
     Dosage: 50 MG, QWK
     Route: 058
  2. ENBREL [Suspect]
     Indication: PSORIATIC ARTHROPATHY
  3. CIPRO                              /00697201/ [Concomitant]
     Dosage: 750 MG, UNK
  4. CODEINE W/GUAIFENESIN              /01686101/ [Concomitant]
     Dosage: 10-300 MG
  5. LISINOPRIL HCTZ [Concomitant]
     Dosage: 20-12.5
  6. METHOTREXATE [Concomitant]
     Dosage: UNK, 250/10 ML
  7. FOLIC ACID [Concomitant]
     Dosage: UNK

REACTIONS (7)
  - Injection site haemorrhage [Unknown]
  - Oropharyngeal pain [Unknown]
  - Nasal congestion [Unknown]
  - Sinus congestion [Unknown]
  - Respiratory tract congestion [Unknown]
  - Pyrexia [Unknown]
  - Cough [Unknown]
